FAERS Safety Report 24290999 (Version 1)
Quarter: 2024Q3

REPORT INFORMATION
  Report Type: Spontaneous
  Country: US (occurrence: US)
  Receive Date: 20240906
  Receipt Date: 20240906
  Transmission Date: 20241016
  Serious: Yes (Congenital Anomaly)
  Sender: AMGEN
  Company Number: US-AMGEN-USASP2024176649

PATIENT
  Sex: Male

DRUGS (2)
  1. ENBREL [Suspect]
     Active Substance: ETANERCEPT
     Indication: Exposure during pregnancy
     Dosage: UNK
     Route: 064
  2. ENBREL [Suspect]
     Active Substance: ETANERCEPT
     Indication: Maternal exposure during breast feeding
     Dosage: UNK
     Route: 063

REACTIONS (3)
  - Lipoma [Not Recovered/Not Resolved]
  - Foetal exposure during pregnancy [Unknown]
  - Maternal exposure during breast feeding [Unknown]

NARRATIVE: CASE EVENT DATE: 20240101
